FAERS Safety Report 25545365 (Version 3)
Quarter: 2025Q3

REPORT INFORMATION
  Report Type: Report from Study
  Country: US (occurrence: US)
  Receive Date: 20250711
  Receipt Date: 20250911
  Transmission Date: 20251021
  Serious: Yes (Other)
  Sender: NOVARTIS
  Company Number: US-002147023-NVSC2025US108558

PATIENT
  Sex: Male

DRUGS (6)
  1. KESIMPTA [Suspect]
     Active Substance: OFATUMUMAB
     Indication: Product used for unknown indication
     Route: 065
  2. KESIMPTA [Suspect]
     Active Substance: OFATUMUMAB
     Route: 065
  3. KESIMPTA [Suspect]
     Active Substance: OFATUMUMAB
     Route: 065
  4. KESIMPTA [Suspect]
     Active Substance: OFATUMUMAB
     Route: 065
  5. KESIMPTA [Suspect]
     Active Substance: OFATUMUMAB
     Route: 065
  6. KESIMPTA [Suspect]
     Active Substance: OFATUMUMAB
     Route: 065

REACTIONS (9)
  - Multiple sclerosis [Unknown]
  - Dizziness [Unknown]
  - Fatigue [Unknown]
  - Pyrexia [Unknown]
  - Erythema [Unknown]
  - Headache [Unknown]
  - Pruritus [Unknown]
  - Cerebral disorder [Unknown]
  - Blood pressure increased [Unknown]
